FAERS Safety Report 21201274 (Version 2)
Quarter: 2022Q4

REPORT INFORMATION
  Report Type: Spontaneous
  Country: AR (occurrence: AR)
  Receive Date: 20220811
  Receipt Date: 20221004
  Transmission Date: 20230113
  Serious: No
  Sender: FDA-Public Use
  Company Number: AR-PFIZER INC-PV202200033485

PATIENT
  Age: 8 Year
  Sex: Female

DRUGS (1)
  1. GENOTROPIN [Suspect]
     Active Substance: SOMATROPIN
     Indication: Growth hormone deficiency
     Dosage: 0.6 TO 1MG, 7 PER WEEK
     Dates: start: 20210728

REACTIONS (2)
  - Wrong technique in device usage process [Recovered/Resolved]
  - Device occlusion [Unknown]

NARRATIVE: CASE EVENT DATE: 20220726
